FAERS Safety Report 6560072-5 (Version None)
Quarter: 2010Q1

REPORT INFORMATION
  Report Type: 
  Country: None (occurrence: None)
  Receive Date: 20100129
  Receipt Date: 20090915
  Transmission Date: 20100710
  Serious: No
  Sender: FDA-Public Use
  Company Number: US-ABBOTT-09P-163-0598057-00

PATIENT
  Sex: Female
  Weight: 72.64 kg

DRUGS (12)
  1. HUMIRA [Suspect]
     Indication: RHEUMATOID ARTHRITIS
     Route: 058
     Dates: start: 20080618, end: 20090501
  2. HUMIRA [Suspect]
     Route: 058
     Dates: start: 20090501, end: 20090801
  3. HUMIRA [Suspect]
     Route: 058
     Dates: start: 20090801
  4. METHOTREXATE [Concomitant]
     Indication: RHEUMATOID ARTHRITIS
  5. TYLENOL-500 [Concomitant]
     Indication: DRUG USE FOR UNKNOWN INDICATION
  6. VIVELLE-DOT [Concomitant]
     Indication: DRUG USE FOR UNKNOWN INDICATION
  7. COENZYME Q10 [Concomitant]
     Indication: DRUG USE FOR UNKNOWN INDICATION
     Route: 048
  8. FISH OIL [Concomitant]
     Indication: DRUG USE FOR UNKNOWN INDICATION
  9. OMEPRAZOLE [Concomitant]
     Indication: DRUG USE FOR UNKNOWN INDICATION
  10. BENICAR [Concomitant]
     Indication: DRUG USE FOR UNKNOWN INDICATION
  11. VYTORIN [Concomitant]
     Indication: DRUG USE FOR UNKNOWN INDICATION
  12. FOLIC ACID [Concomitant]
     Indication: DRUG USE FOR UNKNOWN INDICATION

REACTIONS (2)
  - INFLUENZA [None]
  - SINUSITIS [None]
